FAERS Safety Report 13790495 (Version 1)
Quarter: 2017Q3

REPORT INFORMATION
  Report Type: Spontaneous
  Country: LT (occurrence: LT)
  Receive Date: 20170725
  Receipt Date: 20170725
  Transmission Date: 20171127
  Serious: Yes (Other)
  Sender: FDA-Public Use
  Company Number: PHHY2017LT108425

PATIENT
  Sex: Male

DRUGS (4)
  1. BETADINE [Suspect]
     Active Substance: POVIDONE-IODINE
     Indication: FOETAL EXPOSURE DURING PREGNANCY
     Route: 064
  2. PENICILLIN G BENZATHINE [Suspect]
     Active Substance: PENICILLIN G BENZATHINE
     Indication: FOETAL EXPOSURE DURING PREGNANCY
     Route: 064
  3. CHLORHEXIDINE [Suspect]
     Active Substance: CHLORHEXIDINE
     Indication: FOETAL EXPOSURE DURING PREGNANCY
     Route: 064
  4. AMOXICILLIN. [Suspect]
     Active Substance: AMOXICILLIN
     Indication: FOETAL EXPOSURE DURING PREGNANCY
     Dosage: MATERNAL DOSE 1000 MG, TID
     Route: 064

REACTIONS (2)
  - Foetal exposure during pregnancy [Unknown]
  - Premature baby [Unknown]
